FAERS Safety Report 8234189-3 (Version None)
Quarter: 2012Q1

REPORT INFORMATION
  Report Type: 
  Country: None (occurrence: None)
  Receive Date: 20120321
  Receipt Date: 20120305
  Transmission Date: 20120608
  Serious: Yes (Hospitalization, Other)
  Sender: FDA-Public Use
  Company Number: 2012SP008736

PATIENT
  Age: 55 Year
  Sex: Female
  Weight: 72.1219 kg

DRUGS (2)
  1. MIRALAX [Suspect]
     Indication: CONSTIPATION
     Dosage: ; PO;  17 GM; PO
     Route: 048
     Dates: start: 20110609
  2. MIRALAX [Suspect]
     Indication: CONSTIPATION
     Dosage: ; PO;  17 GM; PO
     Route: 048
     Dates: start: 20120203

REACTIONS (13)
  - URTICARIA [None]
  - PRURITUS [None]
  - RASH [None]
  - PALLOR [None]
  - PARAESTHESIA [None]
  - TREMOR [None]
  - ABDOMINAL DISCOMFORT [None]
  - DYSPNOEA [None]
  - BLOOD PRESSURE DECREASED [None]
  - CHEST PAIN [None]
  - EAR DISCOMFORT [None]
  - SWELLING [None]
  - DIZZINESS [None]
